FAERS Safety Report 10199499 (Version 1)
Quarter: 2014Q2

REPORT INFORMATION
  Report Type: Spontaneous
  Country: US (occurrence: US)
  Receive Date: 20140527
  Receipt Date: 20140527
  Transmission Date: 20141212
  Serious: Yes (Hospitalization)
  Sender: FDA-Public Use
  Company Number: US-ACTELION-A-NJ2014-99154

PATIENT
  Age: 74 Year
  Sex: Female

DRUGS (1)
  1. OPSUMIT [Suspect]
     Indication: PULMONARY HYPERTENSION
     Dosage: 10 MG, UNK
     Route: 048
     Dates: start: 20140313

REACTIONS (1)
  - Pancreatic disorder [Recovering/Resolving]
